FAERS Safety Report 24732877 (Version 3)
Quarter: 2025Q1

REPORT INFORMATION
  Report Type: Spontaneous
  Country: US (occurrence: US)
  Receive Date: 20241213
  Receipt Date: 20250131
  Transmission Date: 20250409
  Serious: Yes (Hospitalization)
  Sender: RADIUS PHARM
  Company Number: US-RADIUS HEALTH, INC.-2024US010080

PATIENT
  Age: 68 Year
  Sex: Female
  Weight: 74.376 kg

DRUGS (8)
  1. TYMLOS [Suspect]
     Active Substance: ABALOPARATIDE
     Indication: Senile osteoporosis
     Route: 058
  2. VITAMIN B12 [Concomitant]
     Active Substance: CYANOCOBALAMIN
     Indication: Product used for unknown indication
     Route: 065
  3. ASPIRIN [Concomitant]
     Active Substance: ASPIRIN
     Indication: Product used for unknown indication
     Route: 065
  4. COENZYME Q10 [Concomitant]
     Active Substance: DIETARY SUPPLEMENT\UBIDECARENONE
     Indication: Product used for unknown indication
     Route: 065
  5. ATORVASTATIN [Concomitant]
     Active Substance: ATORVASTATIN
     Indication: Product used for unknown indication
     Route: 065
  6. LOSARTAN [Concomitant]
     Active Substance: LOSARTAN
     Indication: Product used for unknown indication
     Route: 065
  7. HYDROCHLOROTHIAZIDE [Concomitant]
     Active Substance: HYDROCHLOROTHIAZIDE
     Indication: Product used for unknown indication
  8. LABETALOL [Concomitant]
     Active Substance: LABETALOL
     Indication: Product used for unknown indication
     Route: 065

REACTIONS (3)
  - Blood pressure increased [Unknown]
  - Hypercalcaemia [Recovered/Resolved]
  - Blood alkaline phosphatase increased [Unknown]

NARRATIVE: CASE EVENT DATE: 20241114
